FAERS Safety Report 6099837-5 (Version None)
Quarter: 2009Q1

REPORT INFORMATION
  Report Type: 
  Country: None (occurrence: None)
  Receive Date: 20090303
  Receipt Date: 20090223
  Transmission Date: 20090719
  Serious: Yes (Hospitalization, Other)
  Sender: FDA-Public Use
  Company Number: PHHY2009MX07010

PATIENT
  Age: 76 Year
  Sex: Female

DRUGS (1)
  1. DIOVAN HCT [Suspect]
     Indication: HYPERTENSION
     Dosage: 1DF (160/25 MG)/DAY
     Dates: start: 20090202, end: 20090205

REACTIONS (4)
  - CEREBRAL INFARCTION [None]
  - GENERAL PHYSICAL HEALTH DETERIORATION [None]
  - NERVOUS SYSTEM DISORDER [None]
  - STENT PLACEMENT [None]
